FAERS Safety Report 13681718 (Version 1)
Quarter: 2017Q2

REPORT INFORMATION
  Report Type: Spontaneous
  Country: US (occurrence: US)
  Receive Date: 20170622
  Receipt Date: 20170622
  Transmission Date: 20170830
  Serious: No
  Sender: FDA-Public Use
  Company Number: None

PATIENT
  Sex: Male

DRUGS (1)
  1. ROCURONIUM BROMIDE 10MG/ML [Suspect]
     Active Substance: ROCURONIUM BROMIDE
     Indication: INDUCTION OF ANAESTHESIA
     Route: 040
     Dates: start: 20170620

REACTIONS (3)
  - Product measured potency issue [None]
  - Muscle twitching [None]
  - Cough [None]

NARRATIVE: CASE EVENT DATE: 20170620
